FAERS Safety Report 10865243 (Version 1)
Quarter: 2015Q1

REPORT INFORMATION
  Report Type: Report from Study
  Country: US (occurrence: US)
  Receive Date: 20150224
  Receipt Date: 20150224
  Transmission Date: 20150721
  Serious: No
  Sender: FDA-Public Use
  Company Number: US-MYLANLABS-2014M1012588

PATIENT
  Age: 20 Year
  Sex: Female
  Weight: 52.15 kg

DRUGS (3)
  1. AMNESTEEM [Suspect]
     Active Substance: ISOTRETINOIN
     Dosage: 40 MG, QD
     Route: 048
     Dates: start: 20141117, end: 20141125
  2. AMNESTEEM [Suspect]
     Active Substance: ISOTRETINOIN
     Dosage: 40 MG, QOD
     Route: 048
     Dates: start: 20141129
  3. AMNESTEEM [Suspect]
     Active Substance: ISOTRETINOIN
     Indication: ACNE

REACTIONS (2)
  - Musculoskeletal pain [Recovered/Resolved]
  - Abdominal pain [Recovered/Resolved]

NARRATIVE: CASE EVENT DATE: 20141125
